FAERS Safety Report 16405472 (Version 2)
Quarter: 2019Q2

REPORT INFORMATION
  Report Type: Spontaneous
  Country: GR (occurrence: GR)
  Receive Date: 20190607
  Receipt Date: 20190619
  Transmission Date: 20190711
  Serious: Yes (Hospitalization)
  Sender: FDA-Public Use
  Company Number: GR-PFIZER INC-2019243375

PATIENT
  Age: 55 Year
  Sex: Male

DRUGS (6)
  1. PANTOPRAZOLE [Suspect]
     Active Substance: PANTOPRAZOLE
     Dosage: UNK
     Route: 065
  2. FUROSEMIDE. [Concomitant]
     Active Substance: FUROSEMIDE
     Dosage: 40 MILLIGRAM, QD
     Route: 065
  3. MOXONIDINE [Concomitant]
     Active Substance: MOXONIDINE
     Dosage: 0.3 MILLIGRAM, QD
     Route: 065
  4. APIXABAN [Concomitant]
     Active Substance: APIXABAN
     Dosage: 5 MILLIGRAM, BID
     Route: 065
  5. AMLODIPINE/VALSARTAN [Suspect]
     Active Substance: AMLODIPINE\VALSARTAN
     Indication: HYPERTENSION
     Dosage: UNK
     Route: 065
  6. AMIODARONE [Concomitant]
     Active Substance: AMIODARONE
     Dosage: 200 MILLIGRAM, QD
     Route: 065

REACTIONS (9)
  - Left ventricular hypertrophy [Recovered/Resolved]
  - Diastolic dysfunction [Recovered/Resolved]
  - Atrial fibrillation [Recovered/Resolved]
  - Ventricular extrasystoles [Recovered/Resolved]
  - Chest discomfort [Recovered/Resolved]
  - Acute coronary syndrome [Recovered/Resolved]
  - Anxiety disorder [Recovered/Resolved]
  - Palpitations [Recovered/Resolved]
  - Asthenia [Recovered/Resolved]

NARRATIVE: CASE EVENT DATE: 2018
